FAERS Safety Report 8837382 (Version 2)
Quarter: 2012Q4

REPORT INFORMATION
  Report Type: 
  Country: AR (occurrence: AR)
  Receive Date: 20121012
  Receipt Date: 20121123
  Transmission Date: 20130627
  Serious: Yes (Other)
  Sender: FDA-Public Use
  Company Number: PHHY2012AR085654

PATIENT
  Age: 89 Year
  Sex: Female

DRUGS (3)
  1. EXELON PATCH [Suspect]
     Indication: COGNITIVE DISORDER
     Dosage: UNK UKN, UNK
     Route: 062
     Dates: start: 201207
  2. EXELON PATCH [Suspect]
     Dosage: 4.6 mg, daily
     Route: 062
  3. EXELON PATCH [Suspect]
     Dosage: 9.5 mg, daily
     Route: 062

REACTIONS (9)
  - Pneumonia [Recovered/Resolved]
  - Bronchitis [Recovering/Resolving]
  - Cough [Recovering/Resolving]
  - Pyrexia [Recovering/Resolving]
  - Dysphonia [Recovering/Resolving]
  - Lack of spontaneous speech [Recovering/Resolving]
  - Influenza like illness [Unknown]
  - Underweight [Unknown]
  - Headache [Not Recovered/Not Resolved]
